FAERS Safety Report 14773153 (Version 2)
Quarter: 2018Q2

REPORT INFORMATION
  Report Type: Spontaneous
  Country: JP (occurrence: JP)
  Receive Date: 20180418
  Receipt Date: 20180621
  Transmission Date: 20180711
  Serious: Yes (Death)
  Sender: FDA-Public Use
  Company Number: JP-ROCHE-2108360

PATIENT
  Age: 88 Year
  Sex: Male
  Weight: 50 kg

DRUGS (5)
  1. ACTEMRA [Suspect]
     Active Substance: TOCILIZUMAB
     Indication: CASTLEMAN^S DISEASE
     Route: 041
     Dates: start: 20180403, end: 20180403
  2. MAGMITT [Concomitant]
     Active Substance: MAGNESIUM OXIDE
     Route: 065
     Dates: start: 20180108, end: 20180405
  3. BONALON [Concomitant]
     Active Substance: ALENDRONATE SODIUM
     Route: 065
     Dates: start: 20180227, end: 20180403
  4. PREDNISOLONE. [Suspect]
     Active Substance: PREDNISOLONE
     Indication: PRODUCT USED FOR UNKNOWN INDICATION
     Route: 048
     Dates: start: 20171228, end: 20180405
  5. LANSOPRAZOLE. [Concomitant]
     Active Substance: LANSOPRAZOLE
     Route: 065
     Dates: start: 20171228, end: 20180405

REACTIONS (2)
  - Cardiac failure [Fatal]
  - Castleman^s disease [Fatal]

NARRATIVE: CASE EVENT DATE: 20180405
